FAERS Safety Report 20216136 (Version 2)
Quarter: 2022Q1

REPORT INFORMATION
  Report Type: Spontaneous
  Country: JP (occurrence: JP)
  Receive Date: 20211222
  Receipt Date: 20220201
  Transmission Date: 20220423
  Serious: Yes (Other)
  Sender: FDA-Public Use
  Company Number: JP-NOVARTISPH-NVSJ2021JP021096

PATIENT
  Sex: Male

DRUGS (3)
  1. TASIGNA [Interacting]
     Active Substance: NILOTINIB
     Indication: Chronic myeloid leukaemia
     Dosage: 600 MG
     Route: 048
  2. DOCETAXEL [Interacting]
     Active Substance: DOCETAXEL
     Indication: Prostate cancer
     Dosage: UNK
     Route: 065
  3. DOCETAXEL [Interacting]
     Active Substance: DOCETAXEL
     Dosage: UNK
     Route: 065

REACTIONS (4)
  - Prostate cancer [Not Recovered/Not Resolved]
  - Second primary malignancy [Not Recovered/Not Resolved]
  - Drug interaction [Unknown]
  - Vomiting [Recovering/Resolving]
